FAERS Safety Report 10512025 (Version 1)
Quarter: 2014Q4

REPORT INFORMATION
  Report Type: Spontaneous
  Country: US (occurrence: US)
  Receive Date: 20141010
  Receipt Date: 20141010
  Transmission Date: 20150528
  Serious: Yes (Death, Hospitalization)
  Sender: FDA-Public Use
  Company Number: US-JNJFOC-20141006168

PATIENT
  Age: 65 Year
  Sex: Female
  Weight: 87 kg

DRUGS (15)
  1. ONDANSETRON [Concomitant]
     Active Substance: ONDANSETRON
  2. GABAPENTIN. [Concomitant]
     Active Substance: GABAPENTIN
  3. METOPROLOL [Concomitant]
     Active Substance: METOPROLOL
  4. IMBRUVICA [Suspect]
     Active Substance: IBRUTINIB
     Indication: CHRONIC LYMPHOCYTIC LEUKAEMIA
     Route: 048
     Dates: start: 20140403, end: 20140630
  5. ASPIRIN. [Concomitant]
     Active Substance: ASPIRIN
  6. DIGOXIN. [Concomitant]
     Active Substance: DIGOXIN
  7. CALCIUM [Concomitant]
     Active Substance: CALCIUM
  8. ATIVAN [Concomitant]
     Active Substance: LORAZEPAM
  9. COQ10 [Concomitant]
     Active Substance: UBIDECARENONE
  10. GLUCOSAMINE [Concomitant]
     Active Substance: GLUCOSAMINE
  11. POTASSIUM [Concomitant]
     Active Substance: POTASSIUM
  12. SIMVASTATIN. [Concomitant]
     Active Substance: SIMVASTATIN
  13. FUROSEMIDE. [Concomitant]
     Active Substance: FUROSEMIDE
  14. VACCINIUM MACROCARPON [Concomitant]
  15. MAGNESIUM [Concomitant]
     Active Substance: MAGNESIUM

REACTIONS (2)
  - Cardiac arrest [Fatal]
  - Brain injury [Unknown]

NARRATIVE: CASE EVENT DATE: 201407
